FAERS Safety Report 11314937 (Version 1)
Quarter: 2015Q3

REPORT INFORMATION
  Report Type: Spontaneous
  Country: US (occurrence: US)
  Receive Date: 20150727
  Receipt Date: 20150727
  Transmission Date: 20151125
  Serious: Yes (Other)
  Sender: FDA-Public Use
  Company Number: US-TAKEDA-2015TUS004701

PATIENT
  Sex: Female

DRUGS (3)
  1. BRINTELLIX [Suspect]
     Active Substance: VORTIOXETINE HYDROBROMIDE
     Indication: PRODUCT USED FOR UNKNOWN INDICATION
     Dosage: UNK
     Route: 065
  2. BRINTELLIX [Suspect]
     Active Substance: VORTIOXETINE HYDROBROMIDE
     Dosage: UNK
     Route: 065
  3. FAMVIR [Suspect]
     Active Substance: FAMCICLOVIR
     Indication: INFECTION
     Dosage: UNK
     Route: 065

REACTIONS (5)
  - Drug interaction [Recovered/Resolved]
  - Nausea [Recovered/Resolved]
  - Infection [Recovered/Resolved]
  - Serotonin syndrome [Recovered/Resolved]
  - Headache [Recovered/Resolved]
